FAERS Safety Report 4654884-2 (Version None)
Quarter: 2005Q2

REPORT INFORMATION
  Report Type: 
  Country: None (occurrence: None)
  Receive Date: 20050506
  Receipt Date: 20050428
  Transmission Date: 20051028
  Serious: Yes (Other)
  Sender: FDA-Public Use
  Company Number: JP-MERCK-0505USA00132

PATIENT
  Age: 18 Year
  Sex: Male

DRUGS (3)
  1. PEPCID [Suspect]
     Route: 041
  2. MIDAZOLAM [Concomitant]
     Route: 030
  3. PENICILLIN (UNSPECIFIED) [Concomitant]
     Route: 042

REACTIONS (1)
  - ANAPHYLACTOID REACTION [None]
